FAERS Safety Report 16274531 (Version 1)
Quarter: 2019Q2

REPORT INFORMATION
  Report Type: Spontaneous
  Country: DE (occurrence: DE)
  Receive Date: 20190504
  Receipt Date: 20190504
  Transmission Date: 20190711
  Serious: Yes (Death)
  Sender: FDA-Public Use
  Company Number: DE-INSYS THERAPEUTICS, INC-INS201905-000358

PATIENT
  Age: 62 Year
  Sex: Female

DRUGS (2)
  1. CARFENTANIL [Suspect]
     Active Substance: CARFENTANIL
  2. FENTANYL. [Suspect]
     Active Substance: FENTANYL
     Indication: PRODUCT USED FOR UNKNOWN INDICATION

REACTIONS (1)
  - Toxicity to various agents [Fatal]
